FAERS Safety Report 8525327-3 (Version None)
Quarter: 2012Q3

REPORT INFORMATION
  Report Type: 
  Country: None (occurrence: None)
  Receive Date: 20120720
  Receipt Date: 20120718
  Transmission Date: 20120928
  Serious: Yes (Hospitalization, Other)
  Sender: FDA-Public Use
  Company Number: PHHY2012FR062067

PATIENT
  Sex: Male

DRUGS (6)
  1. VALSARTAN  AND HYDROCHLOROTHIAZIDE [Suspect]
     Dosage: UNK
  2. EZETIMIBE [Concomitant]
  3. PANTOPRAZOLE SODIUM [Concomitant]
  4. BISOPROLOL FUMARATE [Concomitant]
  5. EFFIENT [Concomitant]
  6. ASPIRIN [Concomitant]

REACTIONS (4)
  - CORONARY ARTERY STENOSIS [None]
  - CHEST PAIN [None]
  - ACUTE CORONARY SYNDROME [None]
  - PAIN IN EXTREMITY [None]
